FAERS Safety Report 9702311 (Version 1)
Quarter: 2013Q4

REPORT INFORMATION
  Report Type: Report from Study
  Country: DK (occurrence: DE)
  Receive Date: 20131121
  Receipt Date: 20131121
  Transmission Date: 20140711
  Serious: Yes (Other)
  Sender: FDA-Public Use
  Company Number: DE-FRI-1000051438

PATIENT
  Age: 47 Year
  Sex: Female
  Weight: 81.9 kg

DRUGS (9)
  1. CITALOPRAM [Suspect]
     Dosage: 40 MG
     Route: 048
     Dates: end: 20120817
  2. CITALOPRAM [Interacting]
     Dosage: 30 MG
     Route: 048
     Dates: start: 20120818, end: 20120904
  3. CITALOPRAM [Interacting]
     Dosage: 20 MG
     Route: 048
     Dates: start: 20120905, end: 20120907
  4. CITALOPRAM [Interacting]
     Dosage: 10 MG
     Route: 048
     Dates: start: 20120908, end: 20120914
  5. CYMBALTA [Interacting]
     Dosage: 60 MG
     Route: 048
  6. METOPROLOL [Interacting]
     Indication: MIGRAINE
     Dosage: 47.5 MG
     Route: 048
     Dates: start: 20120705, end: 20120705
  7. METOPROLOL [Interacting]
     Dosage: 95 MG
     Route: 048
     Dates: start: 20120706, end: 20120731
  8. METOPROLOL [Interacting]
     Dosage: 142.5 MG
     Route: 048
     Dates: start: 20120801, end: 20120805
  9. METOPROLOL [Interacting]
     Dosage: 190 MG
     Route: 048
     Dates: start: 20120806

REACTIONS (2)
  - Nightmare [Recovering/Resolving]
  - Drug interaction [Recovering/Resolving]
